FAERS Safety Report 24352714 (Version 1)
Quarter: 2024Q3

REPORT INFORMATION
  Report Type: Spontaneous
  Country: CA (occurrence: CA)
  Receive Date: 20240923
  Receipt Date: 20240923
  Transmission Date: 20241016
  Serious: Yes (Hospitalization, Other)
  Sender: NOVARTIS
  Company Number: CA-002147023-NVSC2024CA187385

PATIENT
  Age: 29 Year
  Sex: Female

DRUGS (1)
  1. LETROZOLE [Suspect]
     Active Substance: LETROZOLE
     Indication: Ovarian cancer
     Dosage: UNK
     Route: 065

REACTIONS (4)
  - Ovarian cancer [Unknown]
  - Malignant neoplasm progression [Unknown]
  - Nausea [Unknown]
  - Abdominal pain [Unknown]
